FAERS Safety Report 5975445-9 (Version None)
Quarter: 2008Q4

REPORT INFORMATION
  Report Type: 
  Country: None (occurrence: None)
  Receive Date: 20081202
  Receipt Date: 20080624
  Transmission Date: 20090506
  Serious: Yes (Hospitalization)
  Sender: FDA-Public Use
  Company Number: US-AMGEN-QUU256950

PATIENT
  Sex: Female

DRUGS (3)
  1. ENBREL [Suspect]
     Indication: PSORIASIS
     Route: 058
     Dates: start: 20071011, end: 20071018
  2. AVAPRO [Concomitant]
  3. TRIAMCINOLONE [Concomitant]

REACTIONS (2)
  - CELLULITIS [None]
  - UPPER RESPIRATORY TRACT INFECTION [None]
